FAERS Safety Report 7966889-4 (Version None)
Quarter: 2011Q4

REPORT INFORMATION
  Report Type: 
  Country: None (occurrence: None)
  Receive Date: 20111209
  Receipt Date: 20111205
  Transmission Date: 20120403
  Serious: Yes (Hospitalization, Other)
  Sender: FDA-Public Use
  Company Number: US-PFIZER INC-2011151669

PATIENT
  Sex: Male

DRUGS (2)
  1. ATRIPLA [Concomitant]
     Indication: HIV TEST POSITIVE
     Dosage: UNK
     Dates: start: 20080201
  2. CHANTIX [Suspect]
     Indication: SMOKING CESSATION THERAPY
     Dosage: UNK
     Route: 048
     Dates: start: 20080901, end: 20081008

REACTIONS (4)
  - INTENTIONAL OVERDOSE [None]
  - DEPRESSION [None]
  - INSOMNIA [None]
  - SUICIDE ATTEMPT [None]
